FAERS Safety Report 21715067 (Version 2)
Quarter: 2022Q4

REPORT INFORMATION
  Report Type: Spontaneous
  Country: AT (occurrence: AT)
  Receive Date: 20221212
  Receipt Date: 20221222
  Transmission Date: 20230112
  Serious: No
  Sender: FDA-Public Use
  Company Number: AT-PFIZER INC-202201345786

PATIENT
  Age: 82 Year
  Sex: Female

DRUGS (1)
  1. PAXLOVID [Suspect]
     Active Substance: NIRMATRELVIR\RITONAVIR
     Indication: COVID-19
     Dosage: UNKNOWN
     Dates: start: 20221117, end: 20221122

REACTIONS (10)
  - Therapeutic product effect incomplete [Recovered/Resolved]
  - Dyspnoea [Recovering/Resolving]
  - Diarrhoea [Recovering/Resolving]
  - Headache [Recovering/Resolving]
  - Chills [Recovering/Resolving]
  - Ear discomfort [Recovering/Resolving]
  - Nasal congestion [Recovering/Resolving]
  - Therapeutic response unexpected [Recovering/Resolving]
  - Dysgeusia [Recovered/Resolved]
  - Cough [Recovering/Resolving]

NARRATIVE: CASE EVENT DATE: 20220101
